FAERS Safety Report 12238382 (Version 1)
Quarter: 2016Q2

REPORT INFORMATION
  Report Type: Spontaneous
  Country: US (occurrence: None)
  Receive Date: 20160404
  Receipt Date: 20160404
  Transmission Date: 20160815
  Serious: Yes (Other)
  Sender: FDA-Public Use
  Company Number: None

PATIENT
  Age: 28 Year
  Sex: Male
  Weight: 86.18 kg

DRUGS (2)
  1. RIFAPENTINE [Suspect]
     Active Substance: RIFAPENTINE
     Indication: LATENT TUBERCULOSIS
     Route: 048
     Dates: start: 20160314, end: 20160328
  2. ISONIAZID. [Concomitant]
     Active Substance: ISONIAZID

REACTIONS (7)
  - Ocular icterus [None]
  - Fatigue [None]
  - Pyrexia [None]
  - Paraesthesia [None]
  - Decreased appetite [None]
  - Jaundice [None]
  - Headache [None]

NARRATIVE: CASE EVENT DATE: 20160328
